FAERS Safety Report 20057603 (Version 3)
Quarter: 2021Q4

REPORT INFORMATION
  Report Type: Spontaneous
  Country: TR (occurrence: TR)
  Receive Date: 20211111
  Receipt Date: 20211215
  Transmission Date: 20220303
  Serious: Yes (Hospitalization, Other)
  Sender: FDA-Public Use
  Company Number: TR-NOVARTISPH-NVSC2021TR253416

PATIENT
  Age: 12 Year
  Sex: Male
  Weight: 60 kg

DRUGS (3)
  1. ILARIS [Suspect]
     Active Substance: CANAKINUMAB
     Indication: Heparin-induced thrombocytopenia
     Dosage: 150 MG, Q4W (1 IN 4 WEEKS)
     Route: 058
     Dates: start: 2017
  2. ILARIS [Suspect]
     Active Substance: CANAKINUMAB
     Indication: Blood immunoglobulin D increased
     Dosage: 150 MG, Q4W (1 IN 4 WEEKS) (14 DAYS AGO)
     Route: 058
  3. ILARIS [Suspect]
     Active Substance: CANAKINUMAB
     Dosage: 150 MG, Q4W (1 IN 4 WEEKS) (14 DAYS AGO)
     Route: 058
     Dates: start: 20200817, end: 20211101

REACTIONS (2)
  - Facial paralysis [Recovering/Resolving]
  - Product use in unapproved indication [Unknown]

NARRATIVE: CASE EVENT DATE: 20211029
